FAERS Safety Report 11689296 (Version 1)
Quarter: 2015Q4

REPORT INFORMATION
  Report Type: Report from Study
  Country: FR (occurrence: FR)
  Receive Date: 20151102
  Receipt Date: 20151102
  Transmission Date: 20160304
  Serious: Yes (Other)
  Sender: FDA-Public Use
  Company Number: FR-ROCHE-1653493

PATIENT
  Age: 68 Year
  Sex: Male

DRUGS (4)
  1. RANIBIZUMAB [Suspect]
     Active Substance: RANIBIZUMAB
     Dosage: RIGHT EYE
     Route: 050
  2. RANIBIZUMAB [Suspect]
     Active Substance: RANIBIZUMAB
     Dosage: RIGHT EYE
     Route: 050
     Dates: start: 20150813
  3. RANIBIZUMAB [Suspect]
     Active Substance: RANIBIZUMAB
     Dosage: RIGHT EYE
     Route: 050
     Dates: start: 20150630, end: 20150630
  4. RANIBIZUMAB [Suspect]
     Active Substance: RANIBIZUMAB
     Indication: NEOVASCULAR AGE-RELATED MACULAR DEGENERATION
     Dosage: RIGHT EYE
     Route: 050
     Dates: start: 20150421

REACTIONS (2)
  - Retinal pigment epithelial tear [Not Recovered/Not Resolved]
  - Haematoma [Not Recovered/Not Resolved]

NARRATIVE: CASE EVENT DATE: 20150731
